FAERS Safety Report 10788563 (Version 3)
Quarter: 2015Q4

REPORT INFORMATION
  Report Type: Spontaneous
  Country: US (occurrence: US)
  Receive Date: 20150212
  Receipt Date: 20151020
  Transmission Date: 20160304
  Serious: No
  Sender: FDA-Public Use
  Company Number: US-GLAXOSMITHKLINE-A1089736A

PATIENT
  Sex: Male

DRUGS (2)
  1. VENTOLIN [Suspect]
     Active Substance: ALBUTEROL SULFATE
     Dosage: 2 PUFF(S) EVERY 4 - 6 HOURS; UP TO 10 PUFFS DAILY
     Route: 055
  2. VENTOLIN [Suspect]
     Active Substance: ALBUTEROL SULFATE
     Indication: CHRONIC OBSTRUCTIVE PULMONARY DISEASE
     Dosage: UNKNOWN DOSING
     Route: 065
     Dates: start: 20080101

REACTIONS (3)
  - Intentional product use issue [Not Recovered/Not Resolved]
  - Chronic obstructive pulmonary disease [Unknown]
  - Inhalation therapy [Unknown]
